FAERS Safety Report 18202490 (Version 1)
Quarter: 2020Q3

REPORT INFORMATION
  Report Type: Spontaneous
  Country: CA (occurrence: CA)
  Receive Date: 20200827
  Receipt Date: 20200827
  Transmission Date: 20201103
  Serious: Yes (Life-Threatening)
  Sender: FDA-Public Use
  Company Number: CA-ACCORD-197089

PATIENT
  Age: 12 Year
  Sex: Male
  Weight: 47 kg

DRUGS (18)
  1. CALCIUM CARBONATE. [Concomitant]
     Active Substance: CALCIUM CARBONATE
  2. GABAPENTIN. [Concomitant]
     Active Substance: GABAPENTIN
  3. HEPARIN [Concomitant]
     Active Substance: HEPARIN SODIUM
  4. MORPHINE [Concomitant]
     Active Substance: MORPHINE
  5. PENTAMIDINE [Concomitant]
     Active Substance: PENTAMIDINE
     Dosage: STRENGTH 300MG,VIAL BP,INTRAMASCULAR
  6. CYTARABINE/CYTARABINE HYDROCHLORIDE/CYTARABINE OCFOSFATE [Suspect]
     Active Substance: CYTARABINE
     Route: 042
  7. ENOXAPARIN [Concomitant]
     Active Substance: ENOXAPARIN
  8. LIDOCAINE. [Concomitant]
     Active Substance: LIDOCAINE
     Dosage: TOPICAL
  9. LORATADINE. [Concomitant]
     Active Substance: LORATADINE
  10. METHOTREXATE. [Suspect]
     Active Substance: METHOTREXATE
     Indication: ANAPLASTIC LARGE-CELL LYMPHOMA
     Dosage: ONCE
     Route: 042
  11. ADCETRIS [Suspect]
     Active Substance: BRENTUXIMAB VEDOTIN
     Indication: ANAPLASTIC LARGE-CELL LYMPHOMA
     Dosage: INTRAVENOUS
     Route: 042
  12. FAMOTIDINE. [Concomitant]
     Active Substance: FAMOTIDINE
     Dosage: SOLUTION INTRAVENOUS
  13. MACROGOL [Concomitant]
     Active Substance: POLYETHYLENE GLYCOLS
  14. NYSTATIN/NYSTATIN/LIPOSOME [Concomitant]
     Active Substance: NYSTATIN
  15. ONDANSETRON [Concomitant]
     Active Substance: ONDANSETRON
  16. ETOPOSIDE. [Suspect]
     Active Substance: ETOPOSIDE
     Indication: ANAPLASTIC LARGE-CELL LYMPHOMA
     Route: 042
  17. PARACETAMOL [Concomitant]
     Active Substance: ACETAMINOPHEN
  18. DIMENHYDRINATE. [Concomitant]
     Active Substance: DIMENHYDRINATE
     Dosage: LIQUID INTRAVENOUS

REACTIONS (2)
  - Pancytopenia [Unknown]
  - Transfusion [Unknown]
